FAERS Safety Report 6019318-4 (Version None)
Quarter: 2008Q4

REPORT INFORMATION
  Report Type: 
  Country: None (occurrence: None)
  Receive Date: 20081224
  Receipt Date: 20081219
  Transmission Date: 20090506
  Serious: Yes (Other)
  Sender: FDA-Public Use
  Company Number: IE-ASTRAZENECA-2008GB02369

PATIENT
  Age: 67 Year
  Sex: Female

DRUGS (5)
  1. CRESTOR [Suspect]
     Indication: BLOOD CHOLESTEROL INCREASED
     Route: 048
     Dates: start: 20081202, end: 20081210
  2. LITHIUM [Concomitant]
  3. DULOXETINE [Concomitant]
  4. DULOXETINE [Concomitant]
     Dosage: DOSE INCREASED
  5. STELAZINE 1MG FILM COATED TABLETS [Concomitant]
     Route: 048

REACTIONS (1)
  - DEPRESSION [None]
